FAERS Safety Report 6010697-0 (Version None)
Quarter: 2008Q4

REPORT INFORMATION
  Report Type: 
  Country: None (occurrence: None)
  Receive Date: 20081218
  Receipt Date: 20081203
  Transmission Date: 20090506
  Serious: No
  Sender: FDA-Public Use
  Company Number: US-JNJFOC-20081201924

PATIENT
  Age: 48 Year
  Sex: Female
  Weight: 81.65 kg

DRUGS (1)
  1. INVEGA [Suspect]
     Indication: SCHIZOPHRENIA
     Route: 048

REACTIONS (1)
  - BLOOD PROLACTIN INCREASED [None]
